FAERS Safety Report 5708001-8 (Version None)
Quarter: 2008Q2

REPORT INFORMATION
  Report Type: 
  Country: None (occurrence: None)
  Receive Date: 20080417
  Receipt Date: 20080407
  Transmission Date: 20081010
  Serious: Yes (Other)
  Sender: FDA-Public Use
  Company Number: GB-ABBOTT-08P-167-0445800-00

PATIENT
  Age: 18 Year
  Sex: Female

DRUGS (5)
  1. VALPROIC ACID [Suspect]
     Indication: AFFECTIVE DISORDER
     Route: 048
     Dates: start: 20070201, end: 20080201
  2. ARIPIPRAZOLE [Concomitant]
     Indication: AUTISM
     Route: 048
     Dates: start: 20070701
  3. ARIPIPRAZOLE [Concomitant]
     Indication: PSYCHOTIC DISORDER
  4. LOFEPRAMINE [Concomitant]
     Indication: DEPRESSION
     Route: 048
     Dates: start: 20070701
  5. MELATONIN [Concomitant]
     Indication: SLEEP DISORDER
     Route: 048
     Dates: start: 20070801

REACTIONS (2)
  - ALOPECIA [None]
  - EMOTIONAL DISTRESS [None]
